FAERS Safety Report 8979724 (Version 1)
Quarter: 2012Q4

REPORT INFORMATION
  Report Type: 
  Country: US (occurrence: US)
  Receive Date: 20121221
  Receipt Date: 20121221
  Transmission Date: 20130627
  Serious: Yes (Other)
  Sender: FDA-Public Use
  Company Number: CHPA2012US025409

PATIENT
  Age: 86 Year
  Sex: Female

DRUGS (2)
  1. DESENEX [Suspect]
     Indication: PROPHYLAXIS
     Dosage: Unk, daily
     Route: 061
  2. ANTIHYPERTENSIVE DRUGS [Suspect]
     Indication: HYPERTENSION
     Dosage: Unk, Unk

REACTIONS (5)
  - Hypertension [Recovered/Resolved]
  - Cough [Not Recovered/Not Resolved]
  - Sneezing [Not Recovered/Not Resolved]
  - Off label use [Unknown]
  - Incorrect drug administration duration [Unknown]
